FAERS Safety Report 7767376-9 (Version None)
Quarter: 2011Q3

REPORT INFORMATION
  Report Type: 
  Country: None (occurrence: None)
  Receive Date: 20110922
  Receipt Date: 20100521
  Transmission Date: 20111222
  Serious: No
  Sender: FDA-Public Use
  Company Number: US-ASTRAZENECA-2010SE36655

PATIENT
  Sex: Male

DRUGS (14)
  1. CLONAZEPAM [Concomitant]
     Dates: start: 20061209
  2. OXYCODONE HCL AND ACETAMINOPHEN [Concomitant]
     Dosage: 10-325 MG
     Dates: start: 20061120
  3. SEROQUEL [Suspect]
     Dosage: 100 MG TO 400 MG
     Route: 048
     Dates: start: 20050621
  4. LEVITRA [Concomitant]
     Dates: start: 20061120
  5. EFFEXOR [Concomitant]
     Dates: start: 20061017
  6. DESIPRAMIDE HCL [Concomitant]
     Dates: start: 20050622
  7. GABAPENTIN [Concomitant]
     Dates: start: 20070125
  8. ALPRAZOLAM [Concomitant]
     Dates: start: 20080126
  9. HYDROCODONE BITARTRATE AND ACETAMINOPHEN [Concomitant]
     Dates: start: 20061117
  10. LEXAPRO [Concomitant]
     Dates: start: 20080213
  11. PROTONIX [Concomitant]
     Dates: start: 20080528
  12. PROMETHAZINE [Concomitant]
     Dates: start: 20070106
  13. AMBIEN CR [Concomitant]
     Dates: start: 20061216
  14. ZYPREXA [Concomitant]
     Dates: start: 20080213

REACTIONS (5)
  - ANXIETY [None]
  - BIPOLAR DISORDER [None]
  - DELUSION [None]
  - HALLUCINATION [None]
  - SCHIZOPHRENIA, PARANOID TYPE [None]
